FAERS Safety Report 17580526 (Version 1)
Quarter: 2020Q1

REPORT INFORMATION
  Report Type: Spontaneous
  Country: US (occurrence: US)
  Receive Date: 20200325
  Receipt Date: 20200325
  Transmission Date: 20200409
  Serious: Yes (Other)
  Sender: FDA-Public Use
  Company Number: NVSC2020US083008

PATIENT
  Age: 69 Year
  Sex: Male

DRUGS (1)
  1. QUETIAPINE. [Suspect]
     Active Substance: QUETIAPINE
     Indication: DELIRIUM
     Dosage: UNK
     Route: 065

REACTIONS (4)
  - Muscle hypertrophy [Unknown]
  - Torticollis [Unknown]
  - Neck pain [Recovering/Resolving]
  - Product use in unapproved indication [Unknown]
